FAERS Safety Report 9121426 (Version 1)
Quarter: 2013Q1

REPORT INFORMATION
  Report Type: Spontaneous
  Country: US (occurrence: US)
  Receive Date: 20130225
  Receipt Date: 20130225
  Transmission Date: 20140127
  Serious: Yes (Other)
  Sender: FDA-Public Use
  Company Number: US-PFIZER INC-2013068240

PATIENT
  Age: 57 Year
  Sex: Male
  Weight: 109 kg

DRUGS (5)
  1. VANCOMYCIN HCL [Suspect]
     Indication: STAPHYLOCOCCAL INFECTION
     Dosage: UNK
     Dates: start: 200701
  2. VANCOMYCIN HCL [Suspect]
     Dosage: 1.75 G, 2X/DAY
     Dates: start: 200701, end: 2007
  3. DIOVAN (VALSARTAN) [Concomitant]
     Indication: HYPERTENSION
     Dosage: 80 MG, 3X/DAY
  4. CLONIDINE [Concomitant]
     Indication: HYPERTENSION
     Dosage: 0.1 MG, 1X/DAY
  5. ATENOLOL [Concomitant]
     Indication: HYPERTENSION
     Dosage: 75 MG, 1X/DAY

REACTIONS (1)
  - Diabetes mellitus [Not Recovered/Not Resolved]
